FAERS Safety Report 6840231-4 (Version None)
Quarter: 2010Q3

REPORT INFORMATION
  Report Type: 
  Country: None (occurrence: None)
  Receive Date: 20100714
  Receipt Date: 20100701
  Transmission Date: 20110219
  Serious: Yes (Hospitalization)
  Sender: FDA-Public Use
  Company Number: PHHY2010US43390

PATIENT
  Sex: Male

DRUGS (2)
  1. EXJADE [Suspect]
     Dosage: UNK
  2. EXJADE [Suspect]
     Dosage: 2 TABS DAILY

REACTIONS (2)
  - SICKLE CELL ANAEMIA WITH CRISIS [None]
  - WOUND [None]
